FAERS Safety Report 14475463 (Version 1)
Quarter: 2018Q1

REPORT INFORMATION
  Report Type: Spontaneous
  Country: US (occurrence: US)
  Receive Date: 20180201
  Receipt Date: 20180201
  Transmission Date: 20180509
  Serious: Yes (Other)
  Sender: FDA-Public Use
  Company Number: US-JNJFOC-20180136229

PATIENT
  Age: 16 Year
  Sex: Female
  Weight: 75.7 kg

DRUGS (8)
  1. REMICADE [Suspect]
     Active Substance: INFLIXIMAB
     Indication: COLITIS ULCERATIVE
     Route: 042
     Dates: start: 20160720
  2. REMICADE [Suspect]
     Active Substance: INFLIXIMAB
     Indication: COLITIS ULCERATIVE
     Route: 042
  3. REMICADE [Suspect]
     Active Substance: INFLIXIMAB
     Indication: COLITIS ULCERATIVE
     Route: 042
     Dates: start: 20150902
  4. REMICADE [Suspect]
     Active Substance: INFLIXIMAB
     Indication: COLITIS ULCERATIVE
     Route: 042
  5. REMICADE [Suspect]
     Active Substance: INFLIXIMAB
     Indication: COLITIS ULCERATIVE
     Route: 042
     Dates: start: 20150513
  6. REMICADE [Suspect]
     Active Substance: INFLIXIMAB
     Indication: COLITIS ULCERATIVE
     Route: 042
     Dates: start: 20170214
  7. REMICADE [Suspect]
     Active Substance: INFLIXIMAB
     Indication: COLITIS ULCERATIVE
     Route: 042
     Dates: start: 20151223
  8. REMICADE [Suspect]
     Active Substance: INFLIXIMAB
     Indication: COLITIS ULCERATIVE
     Route: 042
     Dates: start: 20170517

REACTIONS (25)
  - Epstein-Barr virus infection [Unknown]
  - Sinusitis [Unknown]
  - Road traffic accident [Recovering/Resolving]
  - Iron deficiency anaemia [Unknown]
  - Pharyngitis streptococcal [Recovering/Resolving]
  - Sinus congestion [Unknown]
  - Large intestine polyp [Unknown]
  - Off label use [Unknown]
  - Product use issue [Unknown]
  - Acne [Unknown]
  - Cough [Unknown]
  - Drug level above therapeutic [Unknown]
  - Blood potassium increased [Unknown]
  - Diarrhoea [Unknown]
  - Hyperalbuminaemia [Unknown]
  - Abdominal pain lower [Unknown]
  - Dyspnoea [Unknown]
  - Exposure during pregnancy [Recovered/Resolved]
  - Arthralgia [Unknown]
  - Haematochezia [Unknown]
  - Cytomegalovirus infection [Unknown]
  - Conjunctivitis [Recovering/Resolving]
  - Headache [Unknown]
  - Polymenorrhoea [Unknown]
  - Vitamin D deficiency [Recovered/Resolved]

NARRATIVE: CASE EVENT DATE: 2015
